FAERS Safety Report 4467344-9 (Version None)
Quarter: 2004Q4

REPORT INFORMATION
  Report Type: 
  Country: None (occurrence: None)
  Receive Date: 20041006
  Receipt Date: 20040928
  Transmission Date: 20050328
  Serious: Yes (Death, Hospitalization)
  Sender: FDA-Public Use
  Company Number: US-JNJFOC-20040909665

PATIENT
  Age: 82 Year
  Sex: Male

DRUGS (2)
  1. DURAGESIC [Suspect]
     Route: 062
  2. DURAGESIC [Suspect]
     Indication: CANCER PAIN
     Route: 062

REACTIONS (4)
  - CONFUSIONAL STATE [None]
  - CONSTIPATION [None]
  - HALLUCINATION [None]
  - MALIGNANT NEOPLASM PROGRESSION [None]
